FAERS Safety Report 13620896 (Version 1)
Quarter: 2017Q2

REPORT INFORMATION
  Report Type: Spontaneous
  Country: US (occurrence: DE)
  Receive Date: 20170607
  Receipt Date: 20170607
  Transmission Date: 20170830
  Serious: Yes (Other)
  Sender: FDA-Public Use
  Company Number: US-SUNOVION-2017SUN002387

PATIENT

DRUGS (1)
  1. GLYCOPYRROLATE. [Suspect]
     Active Substance: GLYCOPYRROLATE
     Indication: PRODUCT USED FOR UNKNOWN INDICATION
     Dosage: 1 DF (50UG), QD
     Route: 065
     Dates: start: 20170512

REACTIONS (9)
  - Tongue disorder [Unknown]
  - Neck pain [Unknown]
  - Headache [Unknown]
  - Pain in extremity [Unknown]
  - Oedema peripheral [Unknown]
  - Drug intolerance [Unknown]
  - Arthralgia [Unknown]
  - Fatigue [Unknown]
  - Swollen tongue [Unknown]

NARRATIVE: CASE EVENT DATE: 201705
